FAERS Safety Report 15387181 (Version 1)
Quarter: 2018Q3

REPORT INFORMATION
  Report Type: Spontaneous
  Country: CA (occurrence: CA)
  Receive Date: 20180914
  Receipt Date: 20180914
  Transmission Date: 20181010
  Serious: Yes (Other)
  Sender: FDA-Public Use
  Company Number: CA-PFIZER INC-2018365606

PATIENT
  Sex: Female

DRUGS (2)
  1. SEROQUEL [Concomitant]
     Active Substance: QUETIAPINE FUMARATE
     Dosage: UNK
  2. PRISTIQ EXTENDED?RELEASE [Suspect]
     Active Substance: DESVENLAFAXINE SUCCINATE
     Dosage: 15 MG, 1X/DAY
     Dates: start: 20180902, end: 20180903

REACTIONS (10)
  - Decreased appetite [Unknown]
  - Pyrexia [Unknown]
  - Feeling abnormal [Unknown]
  - Panic attack [Unknown]
  - Suicidal ideation [Unknown]
  - Diarrhoea [Unknown]
  - Anxiety [Unknown]
  - Vomiting [Unknown]
  - Hyperhidrosis [Unknown]
  - Emotional disorder [Unknown]

NARRATIVE: CASE EVENT DATE: 201809
